FAERS Safety Report 8774733 (Version 1)
Quarter: 2012Q4

REPORT INFORMATION
  Report Type: 
  Country: US (occurrence: US)
  Receive Date: 20120910
  Receipt Date: 20120910
  Transmission Date: 20130627
  Serious: Yes (Hospitalization)
  Sender: FDA-Public Use
  Company Number: US-VERTEX PHARMACEUTICAL INC.-2012-020630

PATIENT
  Age: 50 Year
  Sex: Male

DRUGS (5)
  1. INCIVEK [Suspect]
     Indication: HEPATITIS C
     Route: 048
  2. PEGINTERFERON [Concomitant]
     Indication: HEPATITIS C
     Dosage: UNK
  3. RIBAVIRIN [Concomitant]
     Indication: HEPATITIS C
  4. ISENTRESS [Concomitant]
     Indication: HIV INFECTION
  5. TRUVADA [Concomitant]
     Indication: HIV INFECTION

REACTIONS (4)
  - Umbilical hernia [Unknown]
  - Stevens-Johnson syndrome [Not Recovered/Not Resolved]
  - Drug dose omission [Recovered/Resolved]
  - Off label use [Unknown]
